FAERS Safety Report 13532345 (Version 5)
Quarter: 2017Q3

REPORT INFORMATION
  Report Type: Spontaneous
  Country: IT (occurrence: IT)
  Receive Date: 20170510
  Receipt Date: 20170919
  Transmission Date: 20171127
  Serious: Yes (Other)
  Sender: FDA-Public Use
  Company Number: IT-PFIZER INC-2017202347

PATIENT
  Age: 56 Year
  Sex: Female

DRUGS (1)
  1. PREGABALIN. [Suspect]
     Active Substance: PREGABALIN
     Indication: EPILEPSY
     Dosage: 14 DF, UNK
     Route: 048

REACTIONS (4)
  - Malaise [Unknown]
  - Intentional self-injury [Unknown]
  - Drug abuse [Unknown]
  - Nausea [Unknown]

NARRATIVE: CASE EVENT DATE: 20170419
